FAERS Safety Report 16258779 (Version 1)
Quarter: 2019Q2

REPORT INFORMATION
  Report Type: Spontaneous
  Country: SE (occurrence: SE)
  Receive Date: 20190501
  Receipt Date: 20190501
  Transmission Date: 20190711
  Serious: Yes (Hospitalization)
  Sender: FDA-Public Use
  Company Number: SE-TEVA-2019-SE-1043383

PATIENT
  Sex: Male

DRUGS (1)
  1. LOPERAMIDE [Suspect]
     Active Substance: LOPERAMIDE
     Dosage: ^30-40 ST PER DAY ^
     Route: 048
     Dates: end: 20161021

REACTIONS (2)
  - Intentional overdose [Unknown]
  - Tremor [Unknown]

NARRATIVE: CASE EVENT DATE: 2016
